FAERS Safety Report 10580165 (Version 3)
Quarter: 2015Q1

REPORT INFORMATION
  Report Type: Spontaneous
  Country: US (occurrence: US)
  Receive Date: 20141112
  Receipt Date: 20150130
  Transmission Date: 20150720
  Serious: Yes (Other)
  Sender: FDA-Public Use
  Company Number: US-GLAXOSMITHKLINE-US2014GSK020459

PATIENT
  Age: 26 Year
  Sex: Female

DRUGS (1)
  1. BENLYSTA [Suspect]
     Active Substance: BELIMUMAB
     Indication: SYSTEMIC LUPUS ERYTHEMATOSUS
     Dosage: 760 MG, U
     Dates: start: 20140819

REACTIONS (2)
  - Hip surgery [Recovered/Resolved]
  - Cartilage injury [Unknown]

NARRATIVE: CASE EVENT DATE: 20141104
